FAERS Safety Report 14715654 (Version 1)
Quarter: 2018Q2

REPORT INFORMATION
  Report Type: Spontaneous
  Country: PK (occurrence: PK)
  Receive Date: 20180404
  Receipt Date: 20180404
  Transmission Date: 20180711
  Serious: Yes (Hospitalization, Other)
  Sender: FDA-Public Use
  Company Number: PK-CONCORDIA PHARMACEUTICALS INC.-GSH201804-001120

PATIENT
  Sex: Male

DRUGS (8)
  1. HYDROXYCHLOROQUINE [Suspect]
     Active Substance: HYDROXYCHLOROQUINE
     Route: 065
     Dates: end: 201512
  2. PREDNISOLONE. [Suspect]
     Active Substance: PREDNISOLONE
     Indication: CHRONIC LYMPHOCYTIC INFLAMMATION WITH PONTINE PERIVASCULAR ENHANCEMENT RESPONSIVE TO STEROIDS
     Route: 048
     Dates: start: 201402
  3. METHOTREXATE. [Suspect]
     Active Substance: METHOTREXATE
     Indication: CHRONIC LYMPHOCYTIC INFLAMMATION WITH PONTINE PERIVASCULAR ENHANCEMENT RESPONSIVE TO STEROIDS
     Route: 065
     Dates: start: 201310, end: 201402
  4. HYDROXYCHLOROQUINE [Suspect]
     Active Substance: HYDROXYCHLOROQUINE
     Indication: CHRONIC LYMPHOCYTIC INFLAMMATION WITH PONTINE PERIVASCULAR ENHANCEMENT RESPONSIVE TO STEROIDS
     Route: 065
     Dates: start: 201510
  5. PREDNISOLONE. [Suspect]
     Active Substance: PREDNISOLONE
     Route: 048
  6. METHOTREXATE. [Suspect]
     Active Substance: METHOTREXATE
     Route: 065
     Dates: start: 201402, end: 201510
  7. PREDNISOLONE. [Suspect]
     Active Substance: PREDNISOLONE
     Route: 048
  8. METHYLPREDNISOLONE. [Suspect]
     Active Substance: METHYLPREDNISOLONE
     Indication: CHRONIC LYMPHOCYTIC INFLAMMATION WITH PONTINE PERIVASCULAR ENHANCEMENT RESPONSIVE TO STEROIDS
     Route: 065
     Dates: start: 201402

REACTIONS (21)
  - Drug ineffective [Unknown]
  - Bone marrow failure [Unknown]
  - Chronic lymphocytic inflammation with pontine perivascular enhancement responsive to steroids [Recovered/Resolved]
  - Skin necrosis [Unknown]
  - Off label use [Unknown]
  - Platelet count decreased [Unknown]
  - Nodule [Unknown]
  - Megakaryocytes decreased [Unknown]
  - Total lung capacity decreased [Unknown]
  - Rash [Recovered/Resolved]
  - Erythema [Unknown]
  - Pancytopenia [Unknown]
  - Pyrexia [Unknown]
  - Neutropenic sepsis [Recovered/Resolved]
  - Papule [Unknown]
  - Neutrophil percentage decreased [Unknown]
  - Neutrophil count decreased [Unknown]
  - Hepatic enzyme abnormal [Unknown]
  - Skin lesion [Unknown]
  - Myelodysplastic syndrome [Unknown]
  - Haemoglobin decreased [Unknown]

NARRATIVE: CASE EVENT DATE: 201510
